FAERS Safety Report 5371091-9 (Version None)
Quarter: 2007Q2

REPORT INFORMATION
  Report Type: 
  Country: None (occurrence: None)
  Receive Date: 20070615
  Receipt Date: 20070316
  Transmission Date: 20071010
  Serious: Yes (Other)
  Sender: FDA-Public Use
  Company Number: 200711899US

PATIENT
  Age: 69 Year
  Sex: Male

DRUGS (5)
  1. LANTUS [Suspect]
     Indication: DIABETES MELLITUS INSULIN-DEPENDENT
     Dosage: 15 U INJ
  2. LANTUS [Suspect]
     Indication: DIABETES MELLITUS INSULIN-DEPENDENT
     Dosage: 12 U INJ
     Dates: start: 20070201
  3. INSULIN (HUMALOG /00030501/) [Concomitant]
  4. MAGNESIUM OXIDE [Concomitant]
  5. OTHER MEDICATIONS NOS [Concomitant]

REACTIONS (3)
  - BLOOD GLUCOSE DECREASED [None]
  - GLYCOSYLATED HAEMOGLOBIN INCREASED [None]
  - HYPOGLYCAEMIA [None]
